FAERS Safety Report 9888923 (Version 2)
Quarter: 2014Q1

REPORT INFORMATION
  Report Type: Report from Study
  Country: DE (occurrence: DE)
  Receive Date: 20140211
  Receipt Date: 20140320
  Transmission Date: 20141002
  Serious: Yes (Hospitalization)
  Sender: FDA-Public Use
  Company Number: DE-GLAXOSMITHKLINE-B0768918C

PATIENT
  Sex: Female
  Weight: 56 kg

DRUGS (2)
  1. TOPOTECAN [Suspect]
     Indication: OVARIAN CANCER RECURRENT
     Dosage: 1.25MG PER DAY
     Route: 042
     Dates: start: 20111107, end: 20120224
  2. BLINDED STUDY MEDICATION [Suspect]
     Indication: OVARIAN CANCER RECURRENT
     Dosage: 800MG PER DAY
     Route: 048
     Dates: start: 20111112, end: 20120706

REACTIONS (1)
  - Hydronephrosis [Recovered/Resolved]
